FAERS Safety Report 15788241 (Version 1)
Quarter: 2019Q1

REPORT INFORMATION
  Report Type: Spontaneous
  Country: JP (occurrence: JP)
  Receive Date: 20190104
  Receipt Date: 20190104
  Transmission Date: 20190417
  Serious: Yes (Other)
  Sender: FDA-Public Use
  Company Number: JP-CONCORDIA PHARMACEUTICALS INC.-E2B_00011836

PATIENT
  Age: 75 Year
  Sex: Female

DRUGS (9)
  1. CYCLOPHOSPHAMIDE. [Suspect]
     Active Substance: CYCLOPHOSPHAMIDE
     Indication: DIFFUSE LARGE B-CELL LYMPHOMA STAGE II
     Dosage: DAY 1; 700 MG/M^2 IN EACH CYCLE WITH AN INTERVAL OF 21-28 DAYS.
  2. CYCLOPHOSPHAMIDE. [Suspect]
     Active Substance: CYCLOPHOSPHAMIDE
     Dosage: DAY 1; 700 MG/M^2 ON DAYS 1-5 OF EACH CYCLE
  3. RITUXIMAB. [Suspect]
     Active Substance: RITUXIMAB
     Indication: DIFFUSE LARGE B-CELL LYMPHOMA STAGE II
     Dosage: DAY 1; 375 MG/M^2 IN EACH CYCLE WITH AN INTERVAL OF 21-28 DAYS
  4. PREDNISOLONE. [Suspect]
     Active Substance: PREDNISOLONE
     Indication: DIFFUSE LARGE B-CELL LYMPHOMA STAGE II
     Dosage: DAYS 1-5; 60 MG/M^2 IN EACH CYCLE WITH AN INTERVAL OF 21-28 DAYS
  5. DOXORUBICIN [Suspect]
     Active Substance: DOXORUBICIN
     Indication: DIFFUSE LARGE B-CELL LYMPHOMA STAGE II
     Dosage: DAY 1; 50 MG/M^2  IN EACH CYCLE) WITH AN INTERVAL OF 21-28 DAYS
  6. VINCRISTINE [Suspect]
     Active Substance: VINCRISTINE
     Indication: DIFFUSE LARGE B-CELL LYMPHOMA STAGE II
     Dosage: DAY 1; 1.4 MG/M^2 ON DAYS 1-5 OF EACH CYCLE
  7. PREDNISOLONE. [Suspect]
     Active Substance: PREDNISOLONE
     Dosage: DAYS 1-5; 60 MG/M^2 ON DAYS 1-5 OF EACH CYCLE
  8. RITUXIMAB. [Suspect]
     Active Substance: RITUXIMAB
     Dosage: DAY 1; 375 MG/M^2 ON DAYS 1-5 OF EACH CYCLE
  9. DOXORUBICIN [Suspect]
     Active Substance: DOXORUBICIN
     Dosage: DAY 1; 50 MG/M^2  ON DAYS 1-5 OF EACH CYCLE

REACTIONS (1)
  - Neutropenia [Recovered/Resolved]
